FAERS Safety Report 5139499-4 (Version None)
Quarter: 2006Q4

REPORT INFORMATION
  Report Type: 
  Country: None (occurrence: None)
  Receive Date: 20061025
  Receipt Date: 20061025
  Transmission Date: 20070319
  Serious: Yes (Other)
  Sender: FDA-Public Use
  Company Number: None

PATIENT
  Age: 36 Year
  Sex: Male
  Weight: 93 kg

DRUGS (1)
  1. OXANDROLONE [Suspect]
     Indication: PROMOTION OF WOUND HEALING
     Dosage: 10MG  PO  BID
     Route: 048
     Dates: start: 20060726, end: 20060808

REACTIONS (1)
  - HEPATOTOXICITY [None]
